FAERS Safety Report 13896871 (Version 1)
Quarter: 2017Q3

REPORT INFORMATION
  Report Type: Report from Study
  Country: US (occurrence: US)
  Receive Date: 20170823
  Receipt Date: 20170823
  Transmission Date: 20171127
  Serious: Yes (Hospitalization)
  Sender: FDA-Public Use
  Company Number: US-CELGENEUS-USA-20170806170

PATIENT
  Age: 63 Year
  Sex: Male
  Weight: 106.6 kg

DRUGS (2)
  1. DEXAMETHASONE. [Suspect]
     Active Substance: DEXAMETHASONE
     Indication: PLASMA CELL MYELOMA
     Route: 065
     Dates: start: 20111206, end: 20140225
  2. CC-5013 [Suspect]
     Active Substance: LENALIDOMIDE
     Indication: PLASMA CELL MYELOMA
     Route: 048
     Dates: start: 20111206, end: 20140225

REACTIONS (1)
  - Adenocarcinoma pancreas [Recovered/Resolved]

NARRATIVE: CASE EVENT DATE: 20150924
